FAERS Safety Report 4899280-8 (Version None)
Quarter: 2006Q1

REPORT INFORMATION
  Report Type: 
  Country: None (occurrence: None)
  Receive Date: 20060106
  Receipt Date: 20050504
  Transmission Date: 20060701
  Serious: Yes (Life-Threatening, Hospitalization)
  Sender: FDA-Public Use
  Company Number: WAES 0505USA00551

PATIENT
  Age: 84 Year
  Sex: Female

DRUGS (3)
  1. TIMOPTIC [Suspect]
     Indication: GLAUCOMA
     Dosage: HS/OPHT
     Route: 047
     Dates: end: 20050101
  2. ASPIRIN [Concomitant]
  3. LISINOPRIL [Concomitant]

REACTIONS (2)
  - EYE IRRITATION [None]
  - HEADACHE [None]
